FAERS Safety Report 10637769 (Version 2)
Quarter: 2014Q4

REPORT INFORMATION
  Report Type: Report from Study
  Country: CN (occurrence: CN)
  Receive Date: 20141208
  Receipt Date: 20141208
  Transmission Date: 20150529
  Serious: Yes (Other)
  Sender: FDA-Public Use
  Company Number: CN-PFIZER INC-2014329898

PATIENT
  Age: 64 Year
  Sex: Male

DRUGS (4)
  1. ERYTHROMYCIN. [Concomitant]
     Active Substance: ERYTHROMYCIN
     Dosage: UNK
  2. TELMISARTAN. [Concomitant]
     Active Substance: TELMISARTAN
     Dosage: UNK
  3. IBUPROFEN. [Suspect]
     Active Substance: IBUPROFEN
     Dosage: 0.3 G FOR 2 DAYS, UNK
  4. TYLENOL [Suspect]
     Active Substance: ACETAMINOPHEN
     Dosage: 0.5 G X 5 PILLS, UNK

REACTIONS (2)
  - Hepatitis [Recovered/Resolved]
  - Nephropathy toxic [Recovered/Resolved]
